FAERS Safety Report 20610461 (Version 1)
Quarter: 2022Q1

REPORT INFORMATION
  Report Type: Report from Study
  Country: ZA (occurrence: ZA)
  Receive Date: 20220318
  Receipt Date: 20220318
  Transmission Date: 20220423
  Serious: Yes (Death, Other)
  Sender: FDA-Public Use
  Company Number: ZA-BAYER-2022A038389

PATIENT
  Sex: Male

DRUGS (11)
  1. EYLEA [Suspect]
     Active Substance: AFLIBERCEPT
     Indication: Age-related macular degeneration
     Dosage: UNK
     Dates: start: 20210210, end: 20210302
  2. EYLEA [Suspect]
     Active Substance: AFLIBERCEPT
     Dosage: CYCLE 1 : 1 X VIAL
     Dates: start: 20210310, end: 20210310
  3. EYLEA [Suspect]
     Active Substance: AFLIBERCEPT
     Dosage: CYCLE 1 : 1 X VIAL
     Dates: start: 20210421, end: 20210421
  4. EYLEA [Suspect]
     Active Substance: AFLIBERCEPT
     Dosage: CYCLE 2: 1 X VIAL
     Dates: start: 20210614, end: 20210614
  5. EYLEA [Suspect]
     Active Substance: AFLIBERCEPT
     Dosage: CYCLE 2: 1 X VIAL
     Dates: start: 20210716, end: 20210716
  6. EYLEA [Suspect]
     Active Substance: AFLIBERCEPT
     Dosage: CYCLE 2: 1 X VIAL
     Dates: start: 20210827, end: 20210827
  7. EYLEA [Suspect]
     Active Substance: AFLIBERCEPT
     Dosage: CYCLE 3: 1 X VIAL
     Dates: start: 20211004, end: 20211004
  8. EYLEA [Suspect]
     Active Substance: AFLIBERCEPT
     Dosage: CYCLE 3: 1 X VIAL
     Dates: start: 20211108, end: 20211108
  9. EYLEA [Suspect]
     Active Substance: AFLIBERCEPT
     Dosage: CYCLE 3: 1 X VIAL
     Dates: start: 20211217, end: 20211217
  10. EYLEA [Suspect]
     Active Substance: AFLIBERCEPT
     Dosage: CYCLE 4: 1 X VIAL
     Dates: start: 20220120, end: 20220120
  11. EYLEA [Suspect]
     Active Substance: AFLIBERCEPT
     Dosage: CYCLE 4: 1 X VIAL
     Dates: start: 20220302, end: 20220302

REACTIONS (1)
  - Sudden death [Fatal]

NARRATIVE: CASE EVENT DATE: 20220309
